FAERS Safety Report 11231388 (Version 2)
Quarter: 2016Q3

REPORT INFORMATION
  Report Type: Spontaneous
  Country: DK (occurrence: DK)
  Receive Date: 20150701
  Receipt Date: 20160804
  Transmission Date: 20161109
  Serious: Yes (Disabling)
  Sender: FDA-Public Use
  Company Number: DK-PFIZER INC-2015215376

PATIENT
  Age: 74 Year
  Sex: Female
  Weight: 90 kg

DRUGS (5)
  1. OXAPAX [Concomitant]
     Active Substance: OXAZEPAM
     Indication: ANXIETY
     Dosage: UNK
     Dates: start: 2010
  2. OXAPAX [Concomitant]
     Active Substance: OXAZEPAM
     Dosage: 15 MG, AS NEEDED, MAX TWICE DAILY
     Dates: start: 20150330, end: 20150623
  3. VALDOXAN [Concomitant]
     Active Substance: AGOMELATINE
     Indication: DEPRESSION
     Dosage: 50 MG, 1X/DAY AT NIGHT
     Dates: start: 20141023, end: 20150526
  4. LYRICA [Suspect]
     Active Substance: PREGABALIN
     Indication: ANXIETY
     Dosage: 150 MG, 2X/DAY
     Route: 048
     Dates: start: 20150326, end: 20150331
  5. LYRICA [Suspect]
     Active Substance: PREGABALIN
     Dosage: 75 MG, 2X/DAY
     Route: 048
     Dates: start: 20150401, end: 20150526

REACTIONS (6)
  - Malaise [Unknown]
  - Gait disturbance [Unknown]
  - Sensory disturbance [Recovering/Resolving]
  - Blister [Recovering/Resolving]
  - Peripheral swelling [Recovering/Resolving]
  - Dizziness [Unknown]

NARRATIVE: CASE EVENT DATE: 201503
